FAERS Safety Report 9528684 (Version 1)
Quarter: 2013Q3

REPORT INFORMATION
  Report Type: Spontaneous
  Country: US (occurrence: US)
  Receive Date: 20130917
  Receipt Date: 20130917
  Transmission Date: 20140515
  Serious: Yes (Other)
  Sender: FDA-Public Use
  Company Number: US-BAYER-2013-111995

PATIENT
  Sex: Female

DRUGS (2)
  1. ALEVE CAPLET [Suspect]
     Indication: BACK PAIN
     Dosage: UNK UNK, BID
     Route: 048
  2. ALEVE CAPLET [Suspect]
     Indication: PAIN IN EXTREMITY

REACTIONS (2)
  - Renal failure chronic [None]
  - Drug ineffective [None]
